FAERS Safety Report 7478243-2 (Version None)
Quarter: 2011Q2

REPORT INFORMATION
  Report Type: 
  Country: None (occurrence: None)
  Receive Date: 20110513
  Receipt Date: 20110506
  Transmission Date: 20111010
  Serious: Yes (Hospitalization)
  Sender: FDA-Public Use
  Company Number: PHHO2011TR07853

PATIENT
  Sex: Male
  Weight: 55.8 kg

DRUGS (2)
  1. EXJADE [Suspect]
     Indication: IRON OVERLOAD
     Dosage: 2375
     Route: 048
     Dates: start: 20100529, end: 20110501
  2. LANSOPRAZOLE [Concomitant]
     Indication: GASTRITIS EROSIVE
     Dosage: UNK
     Dates: start: 20101228, end: 20110501

REACTIONS (1)
  - COLITIS [None]
